FAERS Safety Report 7251751-5 (Version None)
Quarter: 2011Q1

REPORT INFORMATION
  Report Type: 
  Country: None (occurrence: None)
  Receive Date: 20110128
  Receipt Date: 20110119
  Transmission Date: 20110831
  Serious: Yes (Death)
  Sender: FDA-Public Use
  Company Number: US-ELI_LILLY_AND_COMPANY-US201101004855

PATIENT
  Age: 43 Year
  Sex: Male

DRUGS (2)
  1. PROZAC [Suspect]
  2. ELAVIL [Concomitant]

REACTIONS (2)
  - DRUG INTERACTION [None]
  - DEATH [None]
